FAERS Safety Report 10182879 (Version 1)
Quarter: 2014Q2

REPORT INFORMATION
  Report Type: Spontaneous
  Country: US (occurrence: US)
  Receive Date: 20140520
  Receipt Date: 20140520
  Transmission Date: 20141212
  Serious: No
  Sender: FDA-Public Use
  Company Number: US-BAYER-2014-072657

PATIENT
  Age: 75 Year
  Sex: Female

DRUGS (7)
  1. STAXYN (FDT/ODT) [Suspect]
     Dosage: 10 MG, UNK
     Route: 048
     Dates: start: 20140514
  2. SIMVASTATIN [Concomitant]
  3. HYDROCHLOROTHIAZIDE [Concomitant]
  4. SYNTHROID [Concomitant]
  5. ATENOLOL [Concomitant]
  6. LISINOPRIL [Concomitant]
  7. Z-PAK [Concomitant]

REACTIONS (1)
  - Drug administration error [Unknown]
